FAERS Safety Report 6678921-9 (Version None)
Quarter: 2010Q2

REPORT INFORMATION
  Report Type: 
  Country: None (occurrence: None)
  Receive Date: 20100402
  Receipt Date: 20090330
  Transmission Date: 20101027
  Serious: Yes (Other)
  Sender: FDA-Public Use
  Company Number: 2009172551

PATIENT
  Age: 70 Year
  Sex: Male

DRUGS (11)
  1. ARGATROBAN [Suspect]
     Indication: HEPARIN-INDUCED THROMBOCYTOPENIA
     Dosage: 2 UG/KG/MIN, INTRAVENOUS
     Route: 042
     Dates: start: 20090128
  2. PERIDEX (CHORHEXIDINE GLUCONATE) [Concomitant]
  3. ARANESP [Concomitant]
  4. INSULIN (INSULIN) [Concomitant]
  5. COMBIVENT [Concomitant]
  6. LOPRESSOR [Concomitant]
  7. PROTONIX [Concomitant]
  8. ALTACE [Concomitant]
  9. SODIUM CHLORIDE 0.9% [Concomitant]
  10. TIMENTIN [Concomitant]
  11. CUMADIN (WARTFARIN SODIUM) [Concomitant]

REACTIONS (2)
  - DRUG INEFFECTIVE [None]
  - THROMBOSIS [None]
